FAERS Safety Report 18585334 (Version 2)
Quarter: 2020Q4

REPORT INFORMATION
  Report Type: Other
  Country: KW (occurrence: KW)
  Receive Date: 20201207
  Receipt Date: 20201221
  Transmission Date: 20210114
  Serious: Yes (Other)
  Sender: FDA-Public Use
  Company Number: KW-ROCHE-2726749

PATIENT
  Age: 61 Year
  Sex: Male

DRUGS (1)
  1. LUCENTIS [Suspect]
     Active Substance: RANIBIZUMAB
     Indication: DIABETIC RETINAL OEDEMA
     Route: 047
     Dates: start: 20201117

REACTIONS (2)
  - Eye infection [Recovered/Resolved]
  - Eye infection [Recovered/Resolved]

NARRATIVE: CASE EVENT DATE: 20201125
